FAERS Safety Report 4825494-9 (Version None)
Quarter: 2005Q4

REPORT INFORMATION
  Report Type: 
  Country: None (occurrence: None)
  Receive Date: 20051111
  Receipt Date: 20050603
  Transmission Date: 20060501
  Serious: No
  Sender: FDA-Public Use
  Company Number: US-GLAXOSMITHKLINE-A0561153A

PATIENT
  Sex: Male

DRUGS (6)
  1. TRIZIVIR [Suspect]
     Indication: HIV INFECTION
     Route: 048
     Dates: end: 20000101
  2. REYATAZ [Concomitant]
  3. NORVIR [Concomitant]
  4. TRUVADA [Concomitant]
  5. VIDEX EC [Concomitant]
  6. VIREAD [Concomitant]

REACTIONS (2)
  - ANXIETY [None]
  - LIPODYSTROPHY ACQUIRED [None]
